FAERS Safety Report 11781248 (Version 1)
Quarter: 2015Q4

REPORT INFORMATION
  Report Type: Spontaneous
  Country: US (occurrence: US)
  Receive Date: 20151126
  Receipt Date: 20151126
  Transmission Date: 20160305
  Serious: No
  Sender: FDA-Public Use
  Company Number: US-DRREDDYS-USA/USA/15/0046630

PATIENT
  Age: 70 Year
  Sex: Female
  Weight: 81.1 kg

DRUGS (3)
  1. TRIAMTERENE. [Concomitant]
     Active Substance: TRIAMTERENE
     Indication: MENIERE^S DISEASE
     Route: 065
  2. GLIMEPIRIDE 1 MG [Suspect]
     Active Substance: GLIMEPIRIDE
     Indication: TYPE 2 DIABETES MELLITUS
     Route: 065
     Dates: start: 201410, end: 20150317
  3. LISINOPRIL. [Concomitant]
     Active Substance: LISINOPRIL
     Indication: RENAL DISORDER
     Route: 065

REACTIONS (2)
  - Weight increased [Not Recovered/Not Resolved]
  - Lipoma [Recovering/Resolving]

NARRATIVE: CASE EVENT DATE: 201412
